FAERS Safety Report 11927932 (Version 1)
Quarter: 2016Q1

REPORT INFORMATION
  Report Type: Spontaneous
  Country: US (occurrence: US)
  Receive Date: 20160119
  Receipt Date: 20160119
  Transmission Date: 20160526
  Serious: Yes (Congenital Anomaly, Other)
  Sender: FDA-Public Use
  Company Number: US-APOTEX-2016AP005918

PATIENT
  Sex: Female

DRUGS (1)
  1. PAROXETINE HYDROCHLORIDE. [Suspect]
     Active Substance: PAROXETINE HYDROCHLORIDE
     Indication: PRODUCT USED FOR UNKNOWN INDICATION
     Dosage: UNK
     Route: 064

REACTIONS (7)
  - Patent ductus arteriosus [Unknown]
  - Neonatal tachypnoea [Unknown]
  - Oxygen supplementation [Unknown]
  - Foetal exposure during pregnancy [Unknown]
  - Atrial septal defect [Unknown]
  - Syndactyly [Unknown]
  - Neonatal respiratory distress syndrome [Unknown]

NARRATIVE: CASE EVENT DATE: 2015
